FAERS Safety Report 8166652 (Version 18)
Quarter: 2013Q4

REPORT INFORMATION
  Report Type: Report from Study
  Country: BR (occurrence: BR)
  Receive Date: 20111003
  Receipt Date: 20131206
  Transmission Date: 20140711
  Serious: Yes (Death, Life-Threatening, Hospitalization)
  Sender: FDA-Public Use
  Company Number: BR-ROCHE-803660

PATIENT
  Age: 51 Year
  Sex: Female
  Weight: 48 kg

DRUGS (7)
  1. METHOTREXATE [Concomitant]
     Indication: RHEUMATOID ARTHRITIS
     Route: 048
     Dates: start: 200910
  2. FOLIC ACID [Concomitant]
     Indication: TOXICITY TO VARIOUS AGENTS
     Route: 048
     Dates: start: 200910
  3. PREDNISONE [Concomitant]
     Indication: RHEUMATOID ARTHRITIS
     Route: 048
     Dates: start: 200910
  4. PARACETAMOL [Concomitant]
     Indication: RHEUMATOID ARTHRITIS
     Dosage: 40 DROPS
     Route: 048
     Dates: start: 200910
  5. GOLIMUMAB [Concomitant]
     Indication: RHEUMATOID ARTHRITIS
     Route: 058
     Dates: start: 20100930, end: 20110411
  6. TRAMADOL [Concomitant]
     Route: 042
     Dates: start: 20110916
  7. TOCILIZUMAB [Suspect]
     Indication: RHEUMATOID ARTHRITIS
     Dosage: ATE OF LAST DOSE PRIOR TO SAE: 15 SEP 2011
     Route: 058
     Dates: start: 20110816

REACTIONS (3)
  - Lower respiratory tract infection [Fatal]
  - Septic shock [Not Recovered/Not Resolved]
  - Pleural effusion [Not Recovered/Not Resolved]
